FAERS Safety Report 23170901 (Version 1)
Quarter: 2023Q4

REPORT INFORMATION
  Report Type: Report from Study
  Country: US (occurrence: US)
  Receive Date: 20231110
  Receipt Date: 20231110
  Transmission Date: 20240110
  Serious: Yes (Hospitalization)
  Sender: FDA-Public Use
  Company Number: US-Eisai-EC-2023-151109

PATIENT
  Age: 70 Year
  Sex: Male

DRUGS (2)
  1. LENVIMA [Suspect]
     Active Substance: LENVATINIB
     Indication: Renal cancer
     Dosage: WITHDRAWN (OCT-2023)
     Route: 048
     Dates: start: 20231011
  2. EVEROLIMUS [Concomitant]
     Active Substance: EVEROLIMUS
     Indication: Product used for unknown indication
     Dosage: DOSE AND FREQUENCY UNKNOWN.
     Route: 065

REACTIONS (5)
  - Hypertension [Unknown]
  - Dehydration [Unknown]
  - Fall [Unknown]
  - Arthralgia [Unknown]
  - Fatigue [Unknown]

NARRATIVE: CASE EVENT DATE: 20231001
